FAERS Safety Report 7010298-1 (Version None)
Quarter: 2010Q3

REPORT INFORMATION
  Report Type: 
  Country: None (occurrence: None)
  Receive Date: 20100923
  Receipt Date: 20100920
  Transmission Date: 20110219
  Serious: Yes (Other)
  Sender: FDA-Public Use
  Company Number: A0882701A

PATIENT

DRUGS (1)
  1. TELZIR [Suspect]
     Indication: HIV INFECTION
     Route: 065

REACTIONS (3)
  - CONDITION AGGRAVATED [None]
  - DRUG ADMINISTRATION ERROR [None]
  - NERVOUS SYSTEM DISORDER [None]
